FAERS Safety Report 6418200-8 (Version None)
Quarter: 2009Q4

REPORT INFORMATION
  Report Type: 
  Country: None (occurrence: None)
  Receive Date: 20091028
  Receipt Date: 20091027
  Transmission Date: 20100525
  Serious: Yes (Other)
  Sender: FDA-Public Use
  Company Number: GB-EISAI INC.-E2090-00859-SPO-GB

PATIENT
  Age: 39 Year
  Sex: Male

DRUGS (4)
  1. ZONEGRAN [Suspect]
     Indication: EPILEPSY
     Route: 048
     Dates: start: 20070701
  2. VALPROATE SODIUM [Concomitant]
     Indication: EPILEPSY
     Dosage: UNKNOWN
  3. CARBAMAZEPINE [Concomitant]
     Indication: EPILEPSY
     Dosage: UNKNOWN
  4. TRAZODONE [Concomitant]
     Indication: DEPRESSION
     Dates: start: 20090901

REACTIONS (3)
  - CLAVICLE FRACTURE [None]
  - DEPRESSION [None]
  - INFECTION [None]
